FAERS Safety Report 7288625-X (Version None)
Quarter: 2011Q1

REPORT INFORMATION
  Report Type: 
  Country: None (occurrence: None)
  Receive Date: 20110211
  Receipt Date: 20110204
  Transmission Date: 20110831
  Serious: Yes (Death, Life-Threatening, Hospitalization, Other)
  Sender: FDA-Public Use
  Company Number: IN-BRISTOL-MYERS SQUIBB COMPANY-15161698

PATIENT
  Age: 25 Year
  Sex: Female

DRUGS (14)
  1. ARKAMIN [Concomitant]
     Dosage: TABLET
  2. ABATACEPT [Suspect]
     Indication: SYSTEMIC LUPUS ERYTHEMATOSUS
     Route: 042
     Dates: start: 20090331, end: 20100706
  3. CELLCEPT [Suspect]
     Indication: SYSTEMIC LUPUS ERYTHEMATOSUS
     Dates: start: 20090417, end: 20100706
  4. ALENDRONIC ACID [Concomitant]
     Dates: start: 20090724
  5. AMLONG [Concomitant]
     Dosage: TABLET
  6. SHELCAL [Concomitant]
     Dosage: TABLET
  7. HYDROXYCHLOROQUINE [Concomitant]
     Dates: start: 20090224
  8. FOLATE [Concomitant]
     Dosage: TABLET
  9. LASIX [Concomitant]
     Dosage: 1 TABLET IN MORNING.1/2 TABLET IN AFTERNOON
  10. EPTOIN [Concomitant]
     Dosage: 2 TAB AT NIGHT
     Dates: start: 20090529
  11. PANTOCID [Concomitant]
     Dosage: TABLET
     Dates: start: 20100525
  12. CALCIUM CARBONATE [Concomitant]
     Dates: start: 20090331
  13. WYSOLONE [Suspect]
     Indication: SYSTEMIC LUPUS ERYTHEMATOSUS
     Dates: start: 20100525
  14. ALENDRONATE SODIUM [Concomitant]
     Dosage: TABLET

REACTIONS (3)
  - LOWER RESPIRATORY TRACT INFECTION [None]
  - RENAL FAILURE [None]
  - ANAEMIA [None]
